FAERS Safety Report 4437996-8 (Version None)
Quarter: 2004Q3

REPORT INFORMATION
  Report Type: 
  Country: None (occurrence: None)
  Receive Date: 20040831
  Receipt Date: 20040503
  Transmission Date: 20050211
  Serious: No
  Sender: FDA-Public Use
  Company Number: US-GLAXOSMITHKLINE-A0509214A

PATIENT
  Age: 56 Year
  Sex: Male

DRUGS (2)
  1. WELLBUTRIN XL [Suspect]
     Indication: DEPRESSION
     Dosage: 300MG PER DAY
     Route: 048
     Dates: start: 20031101, end: 20040401
  2. TICAR [Concomitant]

REACTIONS (3)
  - CONSTIPATION [None]
  - DYSPEPSIA [None]
  - PARAESTHESIA [None]
